FAERS Safety Report 15214399 (Version 6)
Quarter: 2019Q4

REPORT INFORMATION
  Report Type: Report from Study
  Country: US (occurrence: US)
  Receive Date: 20180730
  Receipt Date: 20191110
  Transmission Date: 20200122
  Serious: Yes (Other)
  Sender: FDA-Public Use
  Company Number: PHHY2018US051489

PATIENT
  Age: 42 Year
  Sex: Female

DRUGS (3)
  1. OXYBUTYNIN. [Concomitant]
     Active Substance: OXYBUTYNIN CHLORIDE
     Indication: HYPERTONIC BLADDER
     Dosage: UNK
     Route: 065
     Dates: start: 20171219, end: 20180305
  2. GILENYA [Suspect]
     Active Substance: FINGOLIMOD HYDROCHLORIDE
     Indication: MULTIPLE SCLEROSIS
     Dosage: UNK, QD
     Route: 048
  3. TOPIRAMATE. [Concomitant]
     Active Substance: TOPIRAMATE
     Indication: NEURALGIA
     Dosage: UNK
     Route: 065
     Dates: start: 20171219

REACTIONS (13)
  - Back pain [Recovered/Resolved]
  - Human papilloma virus test positive [Unknown]
  - Weight decreased [Recovered/Resolved]
  - Menstruation irregular [Recovered/Resolved]
  - Depression [Unknown]
  - Cognitive disorder [Unknown]
  - Hypertension [Recovered/Resolved]
  - Restless legs syndrome [Unknown]
  - Lymphocyte count decreased [Unknown]
  - Headache [Recovered/Resolved]
  - Constipation [Recovered/Resolved]
  - Micturition urgency [Recovered/Resolved]
  - Paraesthesia [Unknown]

NARRATIVE: CASE EVENT DATE: 20171219
